FAERS Safety Report 8530510-7 (Version None)
Quarter: 2012Q3

REPORT INFORMATION
  Report Type: 
  Country: None (occurrence: None)
  Receive Date: 20120723
  Receipt Date: 20120713
  Transmission Date: 20120928
  Serious: Yes (Death)
  Sender: FDA-Public Use
  Company Number: JP-PFIZER INC-2012169387

PATIENT
  Age: 85 Year
  Sex: Female
  Weight: 37 kg

DRUGS (10)
  1. ARGATROBAN [Suspect]
     Indication: ANTICOAGULANT THERAPY
     Dosage: 10MG/HX2ML (3 IN 1 WK)
     Route: 041
     Dates: start: 20100208, end: 20100607
  2. LACTOMIN [Concomitant]
     Dosage: 3 G, 3X/DAY
     Route: 048
     Dates: start: 20100607, end: 20100817
  3. HEPARIN SODIUM [Concomitant]
     Dosage: UNK
     Route: 051
     Dates: start: 20100125
  4. ARGATROBAN [Suspect]
     Dosage: 8MG/HX4H (3 IN 1 WK)
     Route: 041
     Dates: start: 20100723, end: 20100816
  5. LANSOPRAZOLE [Concomitant]
     Dosage: 15 MG, 1X/DAY
     Route: 048
     Dates: start: 20100607, end: 20100817
  6. IRON SUCROSE [Concomitant]
     Indication: PROPHYLAXIS
     Dosage: 40 MG, WEEKLY
     Route: 042
     Dates: start: 20100609, end: 20100811
  7. LASIX [Concomitant]
     Dosage: 120 MG, MORNING 1, NOON 2
     Route: 048
     Dates: start: 20100607, end: 20100817
  8. NESPO [Concomitant]
     Indication: PROPHYLAXIS
     Dosage: 40 UG, WEEKLY
     Route: 042
     Dates: start: 20100611, end: 20100806
  9. MEXIRATE [Concomitant]
     Dosage: 100 MG, 1X/DAY
     Route: 048
     Dates: start: 20100607, end: 20100817
  10. WARFARIN [Concomitant]
     Dosage: UNK
     Route: 048

REACTIONS (1)
  - CARDIAC FAILURE ACUTE [None]
